FAERS Safety Report 21721774 (Version 1)
Quarter: 2022Q4

REPORT INFORMATION
  Report Type: Spontaneous
  Country: US (occurrence: US)
  Receive Date: 20221213
  Receipt Date: 20221213
  Transmission Date: 20230113
  Serious: No
  Sender: FDA-Public Use
  Company Number: US-AMNEAL PHARMACEUTICALS-2022-AMRX-00546

PATIENT
  Sex: Female

DRUGS (1)
  1. COLESTIPOL HYDROCHLORIDE [Suspect]
     Active Substance: COLESTIPOL HYDROCHLORIDE
     Indication: Diverticulum
     Dosage: UNK
     Route: 065

REACTIONS (5)
  - Odynophagia [Unknown]
  - Malnutrition [Unknown]
  - Vomiting [Unknown]
  - Constipation [Unknown]
  - Product size issue [Unknown]
